FAERS Safety Report 9143114 (Version 2)
Quarter: 2013Q3

REPORT INFORMATION
  Report Type: Spontaneous
  Country: FR (occurrence: FR)
  Receive Date: 20130306
  Receipt Date: 20130913
  Transmission Date: 20140515
  Serious: Yes (Disabling, Other)
  Sender: FDA-Public Use
  Company Number: FR-PFIZER INC-2013076274

PATIENT
  Age: 70 Year
  Sex: Female

DRUGS (10)
  1. ATENOLOL [Suspect]
     Dosage: 50 MG, DAILY
     Route: 048
  2. ATENOLOL [Suspect]
     Dosage: 50 MG, 1X/DAY
     Route: 048
  3. COAPROVEL [Concomitant]
     Indication: HYPERTENSION
     Dosage: UNK
     Route: 065
  4. LERCAN [Concomitant]
     Indication: HYPERTENSION
     Dosage: 10 MG, UNK
     Route: 065
  5. ARCOXIA [Concomitant]
     Dosage: UNK
     Route: 065
  6. TRAMADOL [Concomitant]
     Dosage: UNK
     Route: 065
  7. FENTANYL [Concomitant]
     Dosage: UNK
     Route: 065
  8. ACTISKENAN [Concomitant]
     Dosage: UNK
     Route: 065
  9. HYDROCHLOROTHIAZIDE/IRBESARTAN HYDROCHLORIDE [Concomitant]
     Indication: HYPERTENSION
     Dosage: UNK
     Route: 065
  10. LERCANIDIPINE [Concomitant]
     Indication: HYPERTENSION
     Dosage: 10 MG, UNK
     Route: 065

REACTIONS (4)
  - Skin ulcer [Recovering/Resolving]
  - Erysipelas [Recovering/Resolving]
  - Impaired healing [Unknown]
  - Staphylococcus test positive [Unknown]
